FAERS Safety Report 26193930 (Version 1)
Quarter: 2025Q4

REPORT INFORMATION
  Report Type: Spontaneous
  Country: US (occurrence: US)
  Receive Date: 20251224
  Receipt Date: 20251224
  Transmission Date: 20260117
  Serious: No
  Sender: ABBVIE
  Company Number: US-ABBVIE-6602373

PATIENT
  Age: 76 Year
  Sex: Female

DRUGS (5)
  1. LINZESS [Suspect]
     Active Substance: LINACLOTIDE
     Indication: Constipation
     Dosage: LOW DOSE
     Route: 048
     Dates: start: 2025
  2. LINZESS [Suspect]
     Active Substance: LINACLOTIDE
     Indication: Constipation
     Dosage: LARGE DOSE
     Route: 048
     Dates: start: 2025
  3. MIRALAX [Suspect]
     Active Substance: POLYETHYLENE GLYCOL 3350
     Indication: Constipation
     Route: 065
     Dates: start: 2025
  4. CALCIUM CITRATE [Suspect]
     Active Substance: CALCIUM CITRATE
     Indication: Constipation
     Route: 065
     Dates: start: 2025
  5. SENNA [Suspect]
     Active Substance: SENNOSIDES
     Indication: Constipation
     Route: 065
     Dates: start: 2025

REACTIONS (9)
  - Faeces discoloured [Unknown]
  - Drug ineffective [Unknown]
  - Abdominal distension [Unknown]
  - Angina pectoris [Unknown]
  - Volvulus [Unknown]
  - Diarrhoea [Unknown]
  - Constipation [Unknown]
  - Weight decreased [Unknown]
  - Flatulence [Unknown]

NARRATIVE: CASE EVENT DATE: 20250101
